FAERS Safety Report 4410977-6 (Version None)
Quarter: 2004Q3

REPORT INFORMATION
  Report Type: 
  Country: None (occurrence: None)
  Receive Date: 20040729
  Receipt Date: 20040720
  Transmission Date: 20050211
  Serious: Yes (Hospitalization)
  Sender: FDA-Public Use
  Company Number: JPKYO-S-20040018

PATIENT
  Age: 75 Year
  Sex: Male

DRUGS (4)
  1. NAVELBINE [Suspect]
     Indication: NON-SMALL CELL LUNG CANCER
     Route: 042
     Dates: start: 20040212, end: 20040219
  2. LOXONIN [Concomitant]
     Dates: start: 20040128, end: 20040201
  3. GASTER [Concomitant]
     Dates: start: 20040128, end: 20040201
  4. AMBROXOL HYDROCHLORIDE [Concomitant]
     Dates: start: 20031201

REACTIONS (3)
  - ATRIAL FLUTTER [None]
  - HEART RATE INCREASED [None]
  - SUPRAVENTRICULAR EXTRASYSTOLES [None]
